FAERS Safety Report 13438885 (Version 1)
Quarter: 2017Q2

REPORT INFORMATION
  Report Type: Spontaneous
  Country: US (occurrence: US)
  Receive Date: 20170413
  Receipt Date: 20170413
  Transmission Date: 20170830
  Serious: No
  Sender: FDA-Public Use
  Company Number: US-ROCHE-697215

PATIENT
  Age: 70 Year
  Sex: Female
  Weight: 85.5 kg

DRUGS (4)
  1. INSULIN [Concomitant]
     Active Substance: INSULIN NOS
     Route: 065
  2. XENICAL [Suspect]
     Active Substance: ORLISTAT
     Dosage: CANADIAN XENICAL
     Route: 048
  3. GLIBENCLAMIDE [Concomitant]
     Active Substance: GLYBURIDE
     Route: 065
  4. XENICAL [Suspect]
     Active Substance: ORLISTAT
     Indication: WEIGHT CONTROL
     Route: 048

REACTIONS (3)
  - Abdominal pain [Unknown]
  - Diarrhoea [Unknown]
  - Product quality issue [Unknown]
